FAERS Safety Report 11622431 (Version 1)
Quarter: 2015Q4

REPORT INFORMATION
  Report Type: Spontaneous
  Country: US (occurrence: US)
  Receive Date: 20151013
  Receipt Date: 20151013
  Transmission Date: 20160304
  Serious: No
  Sender: FDA-Public Use
  Company Number: US-JNJFOC-20150103091

PATIENT
  Sex: Male
  Weight: 86.18 kg

DRUGS (2)
  1. TYLENOL ARTHRITIS PAIN [Suspect]
     Active Substance: ACETAMINOPHEN
     Route: 048
  2. TYLENOL ARTHRITIS PAIN [Suspect]
     Active Substance: ACETAMINOPHEN
     Indication: ARTHRITIS
     Dosage: USED EVERY NOW AND THEN
     Route: 048
     Dates: start: 2008

REACTIONS (3)
  - Inappropriate schedule of drug administration [Unknown]
  - Incorrect dose administered [Unknown]
  - Expired product administered [Unknown]
